FAERS Safety Report 5034866-1 (Version None)
Quarter: 2006Q2

REPORT INFORMATION
  Report Type: 
  Country: None (occurrence: None)
  Receive Date: 20060519
  Receipt Date: 20050630
  Transmission Date: 20061013
  Serious: No
  Sender: FDA-Public Use
  Company Number: ZONI002186

PATIENT
  Age: 27 Year
  Sex: Female

DRUGS (1)
  1. ZONEGRAN [Suspect]
     Indication: MIGRAINE
     Dosage: ORAL
     Route: 048
     Dates: start: 20050601, end: 20050601

REACTIONS (1)
  - PSYCHOTIC DISORDER [None]
